FAERS Safety Report 12977628 (Version 2)
Quarter: 2017Q1

REPORT INFORMATION
  Report Type: Spontaneous
  Country: US (occurrence: US)
  Receive Date: 20161128
  Receipt Date: 20170221
  Transmission Date: 20170428
  Serious: Yes (Hospitalization)
  Sender: FDA-Public Use
  Company Number: US-B.I. PHARMACEUTICALS,INC./RIDGEFIELD-2016-BI-080637

PATIENT
  Age: 80 Year
  Sex: Female
  Weight: 74.39 kg

DRUGS (2)
  1. TRADJENTA [Suspect]
     Active Substance: LINAGLIPTIN
     Indication: TYPE 2 DIABETES MELLITUS
     Dosage: FORM STRENGTH: 5 MG; FORMULATION: TABLET
     Route: 048
     Dates: start: 20160908, end: 20161015
  2. TRADJENTA [Suspect]
     Active Substance: LINAGLIPTIN
     Dosage: FORM STRENGTH: 5 MG; FORMULATION: TABLET
     Route: 048
     Dates: start: 201610, end: 201610

REACTIONS (5)
  - Feeling abnormal [Recovered/Resolved]
  - Eating disorder [Recovered/Resolved]
  - Blood glucose increased [Unknown]
  - Confusional state [Unknown]
  - Heart rate increased [Recovered/Resolved]

NARRATIVE: CASE EVENT DATE: 201610
